FAERS Safety Report 21592084 (Version 1)
Quarter: 2022Q4

REPORT INFORMATION
  Report Type: Spontaneous
  Country: IT (occurrence: IT)
  Receive Date: 20221114
  Receipt Date: 20221114
  Transmission Date: 20230113
  Serious: Yes (Hospitalization, Other)
  Sender: FDA-Public Use
  Company Number: IT-MERIDIAN MEDICAL TECHNOLOGIES, LLC-2022MMT00050

PATIENT
  Age: 2 Day
  Sex: Male

DRUGS (8)
  1. MIDAZOLAM [Suspect]
     Active Substance: MIDAZOLAM
     Indication: Seizure
     Dosage: 0.06 MG/KG/H
     Route: 065
  2. MIDAZOLAM [Suspect]
     Active Substance: MIDAZOLAM
     Dosage: 0.24 MG/KG/H
     Route: 065
  3. PHENOBARBITAL [Suspect]
     Active Substance: PHENOBARBITAL
     Indication: Seizure
     Dosage: 20 MG/KG LOADING DOSE
     Route: 065
  4. PHENOBARBITAL [Suspect]
     Active Substance: PHENOBARBITAL
     Dosage: 5 MG/KG/DAY MAINTENANCE DOSE
     Route: 065
  5. FENTANYL [Suspect]
     Active Substance: FENTANYL
     Dosage: 1 ?G/KG/H
     Route: 065
  6. FENTANYL [Suspect]
     Active Substance: FENTANYL
     Dosage: 3 ?G/KG/H
     Route: 065
  7. LEVETIRACETAM [Suspect]
     Active Substance: LEVETIRACETAM
     Indication: Seizure
     Dosage: 20 MG/KG LOADING DOSE
     Route: 065
  8. LEVETIRACETAM [Suspect]
     Active Substance: LEVETIRACETAM
     Dosage: 60 MG/KG/DAY MAINTENANCE DOSE
     Route: 065

REACTIONS (2)
  - Encephalopathy neonatal [Recovered/Resolved]
  - Electroencephalogram abnormal [Recovered/Resolved]
